FAERS Safety Report 7964602-8 (Version None)
Quarter: 2011Q4

REPORT INFORMATION
  Report Type: 
  Country: None (occurrence: None)
  Receive Date: 20111208
  Receipt Date: 20111206
  Transmission Date: 20120403
  Serious: Yes (Death, Other)
  Sender: FDA-Public Use
  Company Number: US-PFIZER INC-2011298089

PATIENT
  Sex: Male
  Weight: 77.1 kg

DRUGS (5)
  1. CELEXA [Suspect]
     Indication: DEPRESSION
  2. BUSPAR [Suspect]
     Indication: ANXIETY DISORDER
     Dosage: UNK
  3. BUSPAR [Suspect]
     Indication: DEPRESSION
  4. CELEXA [Suspect]
     Indication: ANXIETY DISORDER
     Dosage: UNK
  5. LYRICA [Suspect]
     Indication: ANXIETY DISORDER
     Dosage: UNK
     Route: 048
     Dates: start: 20091208, end: 20091222

REACTIONS (2)
  - GUN SHOT WOUND [None]
  - INTENTIONAL OVERDOSE [None]
